FAERS Safety Report 10046516 (Version 2)
Quarter: 2014Q2

REPORT INFORMATION
  Report Type: Spontaneous
  Country: FR (occurrence: FR)
  Receive Date: 20140331
  Receipt Date: 20140415
  Transmission Date: 20141212
  Serious: Yes (Hospitalization, Other)
  Sender: FDA-Public Use
  Company Number: FR-BRISTOL-MYERS SQUIBB COMPANY-20551594

PATIENT
  Age: 85 Year
  Sex: Male
  Weight: 69 kg

DRUGS (11)
  1. COUMADIN TABS [Suspect]
     Indication: ATRIAL FIBRILLATION
     Dosage: SCORED TABLET
     Route: 048
     Dates: start: 20140228, end: 201403
  2. LOVENOX [Suspect]
     Indication: ATRIAL FIBRILLATION
     Route: 058
     Dates: start: 20140218
  3. LEVOTHYROX [Concomitant]
     Dosage: 1DF=11.25UNITS NOS
  4. GLUCOPHAGE [Concomitant]
     Dosage: 1DF=850UNITSNOS
  5. ZOCOR [Concomitant]
  6. LACTULOSE [Concomitant]
  7. CLAMOXYL [Concomitant]
     Indication: BRONCHITIS
     Dates: start: 20140310
  8. DAFALGAN [Concomitant]
     Indication: PAIN
  9. IMOVANE [Concomitant]
     Dosage: 1DF=7.5UNITSNOS
  10. CARDENSIEL [Concomitant]
     Dosage: 1DF=1.25UNITSNOS.
  11. INEXIUM [Concomitant]
     Dosage: 1DF=20UNITSNOS

REACTIONS (4)
  - Rectal haemorrhage [Recovered/Resolved]
  - Haemorrhagic anaemia [Recovered/Resolved]
  - Cardiac failure [Recovered/Resolved]
  - Hepatitis acute [Unknown]
